FAERS Safety Report 24819974 (Version 1)
Quarter: 2025Q1

REPORT INFORMATION
  Report Type: Report from Study
  Country: IE (occurrence: IE)
  Receive Date: 20250108
  Receipt Date: 20250108
  Transmission Date: 20250409
  Serious: Yes (Hospitalization)
  Sender: NOVARTIS
  Company Number: IE-002147023-NVSC2025IE002195

PATIENT
  Age: 25 Year
  Sex: Male

DRUGS (1)
  1. KESIMPTA [Suspect]
     Active Substance: OFATUMUMAB
     Indication: Relapsing-remitting multiple sclerosis
     Dosage: 20 MG, QW (ONCE WEEKLY FOR WEEKS 0,1,2  AND 4. THEN ONCE MONTHLY)
     Route: 058
     Dates: start: 20241113

REACTIONS (2)
  - Rash [Unknown]
  - Eye swelling [Unknown]

NARRATIVE: CASE EVENT DATE: 20250107
